FAERS Safety Report 6226892-1 (Version None)
Quarter: 2009Q2

REPORT INFORMATION
  Report Type: 
  Country: None (occurrence: None)
  Receive Date: 20090612
  Receipt Date: 20090601
  Transmission Date: 20091009
  Serious: Yes (Other)
  Sender: FDA-Public Use
  Company Number: TR-BRISTOL-MYERS SQUIBB COMPANY-14656979

PATIENT
  Age: 33 Year
  Sex: Female

DRUGS (6)
  1. CEFEPIME [Suspect]
     Indication: FEBRILE NEUTROPENIA
  2. CEFEPIME [Suspect]
     Indication: CELLULITIS
  3. CIPROFLOXACIN [Suspect]
     Indication: FEBRILE NEUTROPENIA
  4. CIPROFLOXACIN [Suspect]
     Indication: CELLULITIS
  5. VANCOMYCIN HCL [Suspect]
     Indication: FEBRILE NEUTROPENIA
  6. VANCOMYCIN HCL [Suspect]
     Indication: CELLULITIS

REACTIONS (1)
  - STATUS EPILEPTICUS [None]
